FAERS Safety Report 8312038-2 (Version None)
Quarter: 2012Q2

REPORT INFORMATION
  Report Type: 
  Country: None (occurrence: None)
  Receive Date: 20120425
  Receipt Date: 20120412
  Transmission Date: 20120825
  Serious: No
  Sender: FDA-Public Use
  Company Number: US-ELI_LILLY_AND_COMPANY-US201203005197

PATIENT
  Sex: Female

DRUGS (3)
  1. CYMBALTA [Suspect]
     Indication: MIGRAINE
     Dosage: 30 MG, QD
     Dates: start: 20111220
  2. PRAVACHOL [Concomitant]
  3. ASPIRIN [Concomitant]

REACTIONS (4)
  - MEMORY IMPAIRMENT [None]
  - OFF LABEL USE [None]
  - MIGRAINE [None]
  - MIGRAINE WITH AURA [None]
